FAERS Safety Report 4311541-X (Version None)
Quarter: 2004Q1

REPORT INFORMATION
  Report Type: 
  Country: None (occurrence: None)
  Receive Date: 20040303
  Receipt Date: 20040303
  Transmission Date: 20041129
  Serious: Yes (Hospitalization)
  Sender: FDA-Public Use
  Company Number: None

PATIENT
  Age: 61 Year
  Sex: Male

DRUGS (2)
  1. WARFARIN SODIUM [Suspect]
     Indication: HEART VALVE REPLACEMENT
     Dosage: 12.5MG DAILY ORAL
     Route: 048
     Dates: start: 20031214, end: 20031228
  2. WARFARIN SODIUM [Suspect]
     Indication: PROPHYLAXIS
     Dosage: 12.5MG DAILY ORAL
     Route: 048
     Dates: start: 20031214, end: 20031228

REACTIONS (13)
  - CONTUSION [None]
  - DISCOMFORT [None]
  - HAEMATURIA [None]
  - HAEMORRHAGE [None]
  - HYPERCOAGULATION [None]
  - INTERNATIONAL NORMALISED RATIO INCREASED [None]
  - MEDICATION ERROR [None]
  - OEDEMA PERIPHERAL [None]
  - PROTHROMBIN TIME PROLONGED [None]
  - SKIN DISCOLOURATION [None]
  - SKIN LACERATION [None]
  - SWOLLEN TONGUE [None]
  - TONGUE DISCOLOURATION [None]
